FAERS Safety Report 11860167 (Version 3)
Quarter: 2016Q1

REPORT INFORMATION
  Report Type: Report from Study
  Country: CA (occurrence: CA)
  Receive Date: 20151222
  Receipt Date: 20160208
  Transmission Date: 20160526
  Serious: Yes (Life-Threatening, Hospitalization, Other)
  Sender: FDA-Public Use
  Company Number: CA-ABBVIE-15P-028-1520542-00

PATIENT
  Age: 87 Year
  Sex: Female
  Weight: 55 kg

DRUGS (3)
  1. HOLKIRA PAK [Suspect]
     Active Substance: DASABUVIR\OMBITASVIR\PARITAPREVIR\RITONAVIR
     Dosage: 2 OMBITASVIR/PARITAPREVIR/RITONAVIR 12.5/75/50MG IN AM, 1 DASABUVIR 250MG TWICE DAILY
     Route: 048
     Dates: start: 20151215, end: 20160127
  2. HOLKIRA PAK [Suspect]
     Active Substance: DASABUVIR\OMBITASVIR\PARITAPREVIR\RITONAVIR
     Indication: HEPATITIS C
     Route: 048
     Dates: start: 20151111, end: 20151211
  3. AMLODIPINE [Concomitant]
     Active Substance: AMLODIPINE BESYLATE
     Indication: PRODUCT USED FOR UNKNOWN INDICATION
     Dates: start: 20140901

REACTIONS (12)
  - Pyrexia [Unknown]
  - Pulmonary oedema [Unknown]
  - Insomnia [Unknown]
  - Paraesthesia [Not Recovered/Not Resolved]
  - Pericardial effusion [Unknown]
  - Fatigue [Unknown]
  - Rash [Unknown]
  - Lung cancer metastatic [Not Recovered/Not Resolved]
  - Chills [Unknown]
  - Cerebrovascular accident [Unknown]
  - Motor dysfunction [Not Recovered/Not Resolved]
  - Lung neoplasm malignant [Not Recovered/Not Resolved]

NARRATIVE: CASE EVENT DATE: 201512
